FAERS Safety Report 5808518-1 (Version None)
Quarter: 2008Q3

REPORT INFORMATION
  Report Type: 
  Country: None (occurrence: None)
  Receive Date: 20080714
  Receipt Date: 20080714
  Transmission Date: 20090109
  Serious: Yes (Hospitalization)
  Sender: FDA-Public Use
  Company Number: None

PATIENT
  Age: 87 Year
  Sex: Male
  Weight: 83.9154 kg

DRUGS (1)
  1. LEVAQUIN [Suspect]
     Indication: PROPHYLAXIS URINARY TRACT INFECTION
     Dosage: 500 MG DAILY BY MOUTH
     Route: 048
     Dates: start: 20080701, end: 20080705

REACTIONS (3)
  - OEDEMA PERIPHERAL [None]
  - PAIN IN EXTREMITY [None]
  - WHEELCHAIR USER [None]
